FAERS Safety Report 5359977-2 (Version None)
Quarter: 2007Q2

REPORT INFORMATION
  Report Type: 
  Country: None (occurrence: None)
  Receive Date: 20070617
  Receipt Date: 20070606
  Transmission Date: 20071010
  Serious: Yes (Other)
  Sender: FDA-Public Use
  Company Number: DE-JNJFOC-20070205649

PATIENT
  Sex: Male

DRUGS (10)
  1. REMICADE [Suspect]
     Indication: CROHN'S DISEASE
     Route: 042
  2. BUDENOSID [Concomitant]
     Indication: CROHN'S DISEASE
     Route: 048
  3. RELIFLEX [Concomitant]
     Indication: SPONDYLOARTHROPATHY
     Route: 048
  4. CONCOR [Concomitant]
     Indication: HYPERTENSION
     Route: 048
  5. NORVASC [Concomitant]
     Route: 048
  6. APROVEL 300 [Concomitant]
     Route: 065
  7. TROMCARDIN FORTE [Concomitant]
     Route: 065
  8. THIOCTACID [Concomitant]
     Route: 048
  9. PEPDUL [Concomitant]
     Route: 048
  10. TRIAMTERENE AND HYDROCHLOROTHIAZIDE [Concomitant]
     Route: 048

REACTIONS (2)
  - DERMATITIS ALLERGIC [None]
  - OEDEMA PERIPHERAL [None]
